FAERS Safety Report 25165219 (Version 1)
Quarter: 2025Q2

REPORT INFORMATION
  Report Type: Spontaneous
  Country: CN (occurrence: CN)
  Receive Date: 20250407
  Receipt Date: 20250407
  Transmission Date: 20250717
  Serious: Yes (Other)
  Sender: ABBVIE
  Company Number: CN-ABBVIE-6208484

PATIENT
  Age: 53 Year
  Sex: Male
  Weight: 68 kg

DRUGS (5)
  1. VENETOCLAX [Suspect]
     Active Substance: VENETOCLAX
     Indication: Prophylactic chemotherapy
     Dosage: 200 MILLIGRAM
     Route: 048
     Dates: start: 20250317, end: 20250317
  2. VENETOCLAX [Suspect]
     Active Substance: VENETOCLAX
     Indication: Prophylactic chemotherapy
     Dosage: 100 MILLIGRAM
     Route: 048
     Dates: start: 20250316, end: 20250316
  3. VENETOCLAX [Suspect]
     Active Substance: VENETOCLAX
     Indication: Prophylactic chemotherapy
     Dosage: 400 MILLIGRAM
     Route: 048
     Dates: start: 20250318, end: 20250330
  4. MITOXANTRONE HYDROCHLORIDE [Suspect]
     Active Substance: MITOXANTRONE HYDROCHLORIDE
     Indication: Neoplasm prophylaxis
     Dosage: 10 MILLIGRAM, LIPOSOME INJECTION
     Route: 041
     Dates: start: 20250316, end: 20250318
  5. AZACITIDINE [Suspect]
     Active Substance: AZACITIDINE
     Indication: Prophylactic chemotherapy
     Dosage: 100 MILLIGRAM
     Route: 041
     Dates: start: 20250316, end: 20250323

REACTIONS (2)
  - Myelosuppression [Not Recovered/Not Resolved]
  - White blood cell count decreased [Not Recovered/Not Resolved]

NARRATIVE: CASE EVENT DATE: 20250318
